FAERS Safety Report 24161178 (Version 3)
Quarter: 2024Q3

REPORT INFORMATION
  Report Type: Report from Study
  Country: CA (occurrence: CA)
  Receive Date: 20240801
  Receipt Date: 20240910
  Transmission Date: 20241016
  Serious: Yes (Other)
  Sender: CSL BEHRING
  Company Number: CA-BEH-2024175188

PATIENT
  Age: 45 Year
  Sex: Female
  Weight: 61.3 kg

DRUGS (4)
  1. HIZENTRA [Suspect]
     Active Substance: HUMAN IMMUNOGLOBULIN G
     Indication: Natural killer cell count increased
     Dosage: 15 G, QW
     Route: 065
     Dates: start: 20240628
  2. HIZENTRA [Suspect]
     Active Substance: HUMAN IMMUNOGLOBULIN G
     Indication: Cytokine increased
  3. HIZENTRA [Suspect]
     Active Substance: HUMAN IMMUNOGLOBULIN G
     Indication: Immunosuppression
  4. SYNTHROID [Concomitant]
     Active Substance: LEVOTHYROXINE SODIUM

REACTIONS (6)
  - Abortion spontaneous [Unknown]
  - Infusion site pruritus [Recovering/Resolving]
  - Discomfort [Unknown]
  - Maternal exposure timing unspecified [Unknown]
  - Off label use [Unknown]
  - Maternal exposure during pregnancy [Unknown]
